FAERS Safety Report 8190083-8 (Version None)
Quarter: 2012Q1

REPORT INFORMATION
  Report Type: 
  Country: None (occurrence: None)
  Receive Date: 20120307
  Receipt Date: 20120307
  Transmission Date: 20120608
  Serious: Yes (Hospitalization, Other)
  Sender: FDA-Public Use
  Company Number: None

PATIENT
  Age: 68 Year
  Sex: Female
  Weight: 81.646 kg

DRUGS (2)
  1. VESICARE [Suspect]
     Indication: URINARY INCONTINENCE
     Dosage: 5MG
     Route: 048
     Dates: start: 20111011, end: 20111124
  2. VESICARE [Suspect]
     Indication: HYPERTONIC BLADDER
     Dosage: 5MG
     Route: 048
     Dates: start: 20111011, end: 20111124

REACTIONS (6)
  - THROAT TIGHTNESS [None]
  - PRODUCTIVE COUGH [None]
  - DYSPNOEA [None]
  - DYSPEPSIA [None]
  - OESOPHAGEAL STENOSIS [None]
  - DYSPHAGIA [None]
